FAERS Safety Report 10017560 (Version 1)
Quarter: 2014Q1

REPORT INFORMATION
  Report Type: Spontaneous
  Country: US (occurrence: US)
  Receive Date: 20140318
  Receipt Date: 20140318
  Transmission Date: 20141002
  Serious: Yes (Other)
  Sender: FDA-Public Use
  Company Number: US-BRISTOL-MYERS SQUIBB COMPANY-17343146

PATIENT
  Age: 33 Year
  Sex: Female
  Weight: 54.42 kg

DRUGS (2)
  1. ERBITUX [Suspect]
     Indication: COLON CANCER
     Dosage: NO OF DOSE 1
     Dates: start: 20130117
  2. XELODA [Concomitant]
     Dosage: PILLS (ON FOR 1 WEEK/OFF FOR 1 WEEK, ALTERNATING

REACTIONS (3)
  - Rash [Recovering/Resolving]
  - Pain [Recovering/Resolving]
  - Pruritus [Recovering/Resolving]
